FAERS Safety Report 16037153 (Version 1)
Quarter: 2019Q1

REPORT INFORMATION
  Report Type: Spontaneous
  Country: US (occurrence: US)
  Receive Date: 20190305
  Receipt Date: 20190305
  Transmission Date: 20190418
  Serious: No
  Sender: FDA-Public Use
  Company Number: US-IMPAX LABORATORIES, LLC-2018-IPXL-03449

PATIENT
  Sex: Female

DRUGS (2)
  1. RYTARY [Suspect]
     Active Substance: CARBIDOPA\LEVODOPA
     Indication: PARKINSON^S DISEASE
     Dosage: UNK, TWO CAPSULES, FOUR TIMES A DAY (FOUR HOURS APART)
     Route: 048
  2. RYTARY [Suspect]
     Active Substance: CARBIDOPA\LEVODOPA
     Dosage: UNK, AROUND THREE HOURS APART
     Route: 048

REACTIONS (3)
  - Gait disturbance [Recovering/Resolving]
  - Therapeutic response shortened [Unknown]
  - Intentional product use issue [Unknown]
